FAERS Safety Report 7169744-5 (Version None)
Quarter: 2010Q4

REPORT INFORMATION
  Report Type: 
  Country: None (occurrence: None)
  Receive Date: 20101217
  Receipt Date: 20091201
  Transmission Date: 20110411
  Serious: No
  Sender: FDA-Public Use
  Company Number: A0835443A

PATIENT
  Age: 55 Year
  Sex: Female
  Weight: 77.3 kg

DRUGS (7)
  1. SORIATANE [Suspect]
     Indication: PSORIASIS
     Dosage: 20MG PER DAY
     Route: 048
     Dates: start: 20091118, end: 20091123
  2. TRIAMTERENE [Concomitant]
  3. AVAPRO [Concomitant]
  4. WELLBUTRIN XL [Concomitant]
     Dosage: 150MG PER DAY
     Route: 048
  5. XANAX [Concomitant]
     Dosage: .25MG AT NIGHT
  6. HYDROXYZINE [Concomitant]
     Indication: PRURITUS
  7. ZYRTEC [Concomitant]
     Indication: PRURITUS

REACTIONS (2)
  - ABASIA [None]
  - OEDEMA PERIPHERAL [None]
